FAERS Safety Report 9252829 (Version 1)
Quarter: 2013Q2

REPORT INFORMATION
  Report Type: Spontaneous
  Country: GB (occurrence: GB)
  Receive Date: 20130424
  Receipt Date: 20130424
  Transmission Date: 20140414
  Serious: Yes (Hospitalization)
  Sender: FDA-Public Use
  Company Number: GB-TEVA-399247ISR

PATIENT
  Age: 19 Year
  Sex: Male
  Weight: 69.85 kg

DRUGS (7)
  1. PROPRANOLOL [Suspect]
     Indication: ASPERGER^S DISORDER
     Dosage: 20 MILLIGRAM DAILY;
     Route: 048
     Dates: start: 20090101
  2. PROPRANOLOL [Suspect]
  3. DIAZEPAM [Suspect]
     Indication: ASPERGER^S DISORDER
     Dosage: 20 MILLIGRAM DAILY;
     Route: 048
     Dates: start: 20090101
  4. PROCYCLIDINE [Suspect]
     Indication: ASPERGER^S DISORDER
     Dosage: 6 MILLIGRAM DAILY;
     Route: 048
     Dates: start: 20090101
  5. HALOPERIDOL [Suspect]
     Indication: ASPERGER^S DISORDER
     Dosage: 5 MILLIGRAM DAILY;
     Route: 048
     Dates: start: 20090101
  6. ARIPIPRAZOLE [Suspect]
     Indication: ASPERGER^S DISORDER
     Dosage: 30 MILLIGRAM DAILY;
     Route: 048
     Dates: start: 20090101
  7. LORAZEPAM [Suspect]
     Route: 048
     Dates: start: 20090102

REACTIONS (17)
  - Chest pain [Not Recovered/Not Resolved]
  - Dyspnoea [Not Recovered/Not Resolved]
  - Alopecia [Not Recovered/Not Resolved]
  - Anxiety [Not Recovered/Not Resolved]
  - Weight increased [Not Recovered/Not Resolved]
  - Aggression [Not Recovered/Not Resolved]
  - Local swelling [Not Recovered/Not Resolved]
  - Increased appetite [Not Recovered/Not Resolved]
  - Blister [Not Recovered/Not Resolved]
  - Rash [Not Recovered/Not Resolved]
  - Erythema [Not Recovered/Not Resolved]
  - Stress [Not Recovered/Not Resolved]
  - Vision blurred [Not Recovered/Not Resolved]
  - Local swelling [Not Recovered/Not Resolved]
  - Feeling hot [Not Recovered/Not Resolved]
  - Back pain [Not Recovered/Not Resolved]
  - Headache [Not Recovered/Not Resolved]
